FAERS Safety Report 6566560-X (Version None)
Quarter: 2010Q1

REPORT INFORMATION
  Report Type: 
  Country: None (occurrence: None)
  Receive Date: 20100202
  Receipt Date: 20100127
  Transmission Date: 20100710
  Serious: Yes (Hospitalization, Other)
  Sender: FDA-Public Use
  Company Number: AU-PFIZER INC-2009311279

PATIENT
  Age: 58 Year
  Sex: Male

DRUGS (2)
  1. CHAMPIX [Suspect]
     Indication: SMOKING CESSATION THERAPY
     Dosage: 1 MG, 2X/DAY
     Route: 048
  2. VOLTAREN [Suspect]
     Dosage: 25 MG, 3X/DAY
     Route: 048

REACTIONS (5)
  - APNOEA [None]
  - ARRHYTHMIA [None]
  - CYANOSIS [None]
  - SYNCOPE [None]
  - TREMOR [None]
